FAERS Safety Report 9939278 (Version 1)
Quarter: 2014Q1

REPORT INFORMATION
  Report Type: Report from Study
  Country: US (occurrence: US)
  Receive Date: 20140303
  Receipt Date: 20140303
  Transmission Date: 20141002
  Serious: Yes (Other)
  Sender: FDA-Public Use
  Company Number: US-ABBVIE-13P-163-1038726-00

PATIENT
  Age: 56 Year
  Sex: Female

DRUGS (8)
  1. HUMIRA [Suspect]
     Indication: RHEUMATOID ARTHRITIS
     Route: 058
     Dates: start: 201209
  2. HUMIRA [Suspect]
     Indication: PSORIATIC ARTHROPATHY
     Dates: start: 201211
  3. VIMOVO [Concomitant]
     Indication: PRODUCT USED FOR UNKNOWN INDICATION
  4. PLAQUENIL [Concomitant]
     Indication: RHEUMATOID ARTHRITIS
  5. LEXAPRO [Concomitant]
     Indication: DEPRESSION
     Dosage: THE LOWEST DOSE THERE IS
  6. AMBIEN [Concomitant]
     Indication: INSOMNIA
     Dosage: 1/2 TAB QHS
  7. LEVOTHYROXINE [Concomitant]
     Indication: HYPOTHYROIDISM
  8. LEVOTHYROXINE [Concomitant]

REACTIONS (2)
  - Foot operation [Unknown]
  - Injection site pain [Unknown]
